FAERS Safety Report 9853980 (Version 3)
Quarter: 2014Q1

REPORT INFORMATION
  Report Type: Spontaneous
  Country: US (occurrence: US)
  Receive Date: 20140129
  Receipt Date: 20140227
  Transmission Date: 20141002
  Serious: No
  Sender: FDA-Public Use
  Company Number: US-PFIZER INC-2014026153

PATIENT
  Age: 57 Year
  Sex: Female
  Weight: 60.32 kg

DRUGS (3)
  1. EFFEXOR XR [Suspect]
     Indication: DEPRESSION
     Dosage: 150 MG, DAILY
  2. EFFEXOR XR [Suspect]
     Dosage: 225 MG, DAILY
     Dates: start: 2002
  3. CORGARD [Concomitant]
     Indication: HYPERTENSION
     Dosage: 20 MG, 2X/DAY

REACTIONS (4)
  - Dysphagia [Unknown]
  - Muscle disorder [Unknown]
  - Oesophageal disorder [Unknown]
  - Oesophageal spasm [Unknown]
